FAERS Safety Report 10798940 (Version 1)
Quarter: 2015Q1

REPORT INFORMATION
  Report Type: Spontaneous
  Country: US (occurrence: US)
  Receive Date: 20150216
  Receipt Date: 20150216
  Transmission Date: 20150721
  Serious: No
  Sender: FDA-Public Use
  Company Number: US-ALLERGAN-1406079US

PATIENT
  Age: 66 Year
  Sex: Female

DRUGS (12)
  1. REFRESH OPTIVE ADVANCED            /07868701/ [Concomitant]
     Indication: DRY EYE
     Dosage: UNK UNK, PRN
  2. LISINOPRIL. [Concomitant]
     Active Substance: LISINOPRIL
  3. CALCIUM CHEWS [Concomitant]
  4. PROPAFENONE. [Concomitant]
     Active Substance: PROPAFENONE
  5. VITAMIN D                          /00107901/ [Concomitant]
     Active Substance: ERGOCALCIFEROL
  6. ASA [Concomitant]
     Active Substance: ASPIRIN
     Dosage: 81 MG, UNK
  7. B COMPLEX                          /00212701/ [Concomitant]
  8. SIMVASTATIN. [Concomitant]
     Active Substance: SIMVASTATIN
  9. ATENOLOL. [Concomitant]
     Active Substance: ATENOLOL
  10. FLUOROMETHOLONE. [Concomitant]
     Active Substance: FLUOROMETHOLONE
     Indication: EYE INFLAMMATION
  11. RESTASIS [Suspect]
     Active Substance: CYCLOSPORINE
     Indication: DRY EYE
     Dosage: 2 GTT, BID
     Route: 047
     Dates: start: 201401
  12. HUMIRA [Concomitant]
     Active Substance: ADALIMUMAB
     Indication: PSORIATIC ARTHROPATHY
     Dosage: UNK UNK, Q WEEK

REACTIONS (5)
  - Ocular icterus [Recovered/Resolved]
  - Eye pain [Recovered/Resolved]
  - Lacrimation increased [Recovered/Resolved]
  - Eye pain [Not Recovered/Not Resolved]
  - Ocular hyperaemia [Recovered/Resolved]

NARRATIVE: CASE EVENT DATE: 20140325
